FAERS Safety Report 12679623 (Version 1)
Quarter: 2016Q3

REPORT INFORMATION
  Report Type: Spontaneous
  Country: US (occurrence: None)
  Receive Date: 20160823
  Receipt Date: 20160823
  Transmission Date: 20161109
  Serious: Yes (Hospitalization, Disabling)
  Sender: FDA-Public Use
  Company Number: None

PATIENT
  Age: 23 Year
  Sex: Female
  Weight: 97.07 kg

DRUGS (9)
  1. APRI [Suspect]
     Active Substance: DESOGESTREL\ETHINYL ESTRADIOL
     Indication: ENDOMETRIOSIS
     Route: 048
     Dates: start: 20150701, end: 20160807
  2. PROBIOTIC [Concomitant]
     Active Substance: PROBIOTICS NOS
  3. VISTARIL [Concomitant]
     Active Substance: HYDROXYZINE PAMOATE
  4. LATUDA [Concomitant]
     Active Substance: LURASIDONE HYDROCHLORIDE
  5. ONE-ADAY WOMEN^S MULTIVITAMIN [Concomitant]
  6. IRON [Concomitant]
     Active Substance: IRON
  7. ZYPREXA GENERIC [Suspect]
     Active Substance: OLANZAPINE
     Indication: SCHIZOAFFECTIVE DISORDER
     Route: 048
     Dates: start: 20150901, end: 20151130
  8. NUVARING [Concomitant]
     Active Substance: ETHINYL ESTRADIOL\ETONOGESTREL
  9. FISH OIL [Concomitant]
     Active Substance: FISH OIL

REACTIONS (4)
  - Movement disorder [None]
  - Dizziness [None]
  - Presyncope [None]
  - Fall [None]

NARRATIVE: CASE EVENT DATE: 20150829
